FAERS Safety Report 7582255-8 (Version None)
Quarter: 2011Q2

REPORT INFORMATION
  Report Type: 
  Country: None (occurrence: None)
  Receive Date: 20110622
  Receipt Date: 20110608
  Transmission Date: 20111010
  Serious: Yes (Hospitalization, Other)
  Sender: FDA-Public Use
  Company Number: 2011SP027378

PATIENT
  Sex: Male

DRUGS (3)
  1. ENALAPRIL MALEATE [Suspect]
     Indication: HYPERTENSION
     Dates: start: 20090101, end: 20110104
  2. DESLORATADINE [Suspect]
     Indication: RASH
  3. METOPROLOL [Concomitant]

REACTIONS (3)
  - OROPHARYNGEAL DISCOMFORT [None]
  - URTICARIA [None]
  - DYSPNOEA [None]
